FAERS Safety Report 8581798-8 (Version None)
Quarter: 2012Q3

REPORT INFORMATION
  Report Type: 
  Country: None (occurrence: None)
  Receive Date: 20120809
  Receipt Date: 20120805
  Transmission Date: 20120928
  Serious: Yes (Other)
  Sender: FDA-Public Use
  Company Number: PHHY2012IL068310

PATIENT
  Sex: Male

DRUGS (6)
  1. GABAPENTIN [Concomitant]
     Route: 048
  2. BACLOFEN [Concomitant]
     Route: 048
  3. CLONAZEPAM [Concomitant]
     Route: 048
  4. TRAMADOL HCL [Concomitant]
     Route: 048
  5. CANNABIS [Concomitant]
  6. GILENYA [Suspect]
     Indication: MULTIPLE SCLEROSIS
     Dosage: 0.5 MG, QD
     Route: 048
     Dates: start: 20120711

REACTIONS (3)
  - MUSCLE SPASTICITY [None]
  - MUSCLE SPASMS [None]
  - PAIN IN EXTREMITY [None]
